FAERS Safety Report 16283539 (Version 2)
Quarter: 2020Q4

REPORT INFORMATION
  Report Type: Spontaneous
  Country: US (occurrence: US)
  Receive Date: 20190507
  Receipt Date: 20201028
  Transmission Date: 20210113
  Serious: Yes (Other)
  Sender: FDA-Public Use
  Company Number: US-ASTRAZENECA-2019SE62561

PATIENT
  Age: 38 Year
  Sex: Female
  Weight: 195 kg

DRUGS (112)
  1. PRILOSEC [Suspect]
     Active Substance: OMEPRAZOLE MAGNESIUM
     Indication: GASTROOESOPHAGEAL REFLUX DISEASE
     Route: 048
  2. BENADRYL [Concomitant]
     Active Substance: DIPHENHYDRAMINE HYDROCHLORIDE
     Indication: PAIN
     Dates: start: 201401
  3. QUETIAPINE. [Concomitant]
     Active Substance: QUETIAPINE
  4. POTASSIUM CHLORIDE. [Concomitant]
     Active Substance: POTASSIUM CHLORIDE
  5. DOXYCYCLINE MONOHYDRATE [Concomitant]
     Active Substance: DOXYCYCLINE
  6. NYSTOP [Concomitant]
     Active Substance: NYSTATIN
  7. PROAIR HFA [Concomitant]
     Active Substance: ALBUTEROL SULFATE
  8. FERROUS SULFATE. [Concomitant]
     Active Substance: FERROUS SULFATE
  9. ZIPRASIDONE. [Concomitant]
     Active Substance: ZIPRASIDONE
  10. LITHIUM CARBONATE. [Concomitant]
     Active Substance: LITHIUM CARBONATE
  11. CARVEDILOL. [Concomitant]
     Active Substance: CARVEDILOL
  12. SPIRONOLACTONE. [Concomitant]
     Active Substance: SPIRONOLACTONE
  13. AMLODIPINE BESYLATE. [Concomitant]
     Active Substance: AMLODIPINE BESYLATE
  14. AMOXICILLIN. [Concomitant]
     Active Substance: AMOXICILLIN
  15. LYRICA [Concomitant]
     Active Substance: PREGABALIN
  16. NEO/POLY/HC [Concomitant]
     Active Substance: HYDROCORTISONE\NEOMYCIN\POLYMYXIN B SULFATE
  17. RABEPRAZOLE [Concomitant]
     Active Substance: RABEPRAZOLE
  18. OFLOXACIN. [Concomitant]
     Active Substance: OFLOXACIN
  19. FIBERCON [Concomitant]
     Active Substance: CALCIUM POLYCARBOPHIL
  20. LATEX [Concomitant]
     Active Substance: NATURAL LATEX RUBBER
  21. PRILOSEC [Suspect]
     Active Substance: OMEPRAZOLE MAGNESIUM
     Indication: GASTROOESOPHAGEAL REFLUX DISEASE
     Dosage: GENERIC
     Route: 065
     Dates: start: 20130813, end: 20190411
  22. PREVACID 24 HR [Suspect]
     Active Substance: LANSOPRAZOLE
     Route: 065
  23. TUMS [Concomitant]
     Active Substance: CALCIUM CARBONATE
     Dates: start: 2006, end: 2013
  24. SULFAMETH/ TMP [Concomitant]
  25. INDOMETHACIN. [Concomitant]
     Active Substance: INDOMETHACIN
  26. GABAPENTIN. [Concomitant]
     Active Substance: GABAPENTIN
  27. ESTRADIOL. [Concomitant]
     Active Substance: ESTRADIOL
  28. ACETAMINOPHEN AND CODEINE [Concomitant]
     Active Substance: ACETAMINOPHEN\CODEINE PHOSPHATE
  29. BENZONATATE. [Concomitant]
     Active Substance: BENZONATATE
  30. OCEAN SALINE NASAL SPRAY [Concomitant]
     Active Substance: SODIUM CHLORIDE
  31. SYSTANE (HYPROMELLOSE 2910 (4000 MPA.S)) [Concomitant]
     Active Substance: HYPROMELLOSE 2910 (4000 MPA.S)
  32. RELPAX [Concomitant]
     Active Substance: ELETRIPTAN HYDROBROMIDE
  33. ATENOLOL. [Concomitant]
     Active Substance: ATENOLOL
     Indication: HYPERTENSION
     Dates: start: 20140102, end: 20151026
  34. NAPROXEN. [Concomitant]
     Active Substance: NAPROXEN
     Indication: BACK PAIN
     Dates: start: 20140805
  35. SENEXON [Concomitant]
     Active Substance: SENNOSIDES A AND B
  36. RECTIV [Concomitant]
     Active Substance: NITROGLYCERIN
  37. ARIPIPRAZOLE. [Concomitant]
     Active Substance: ARIPIPRAZOLE
  38. VIRTUSSIN [Concomitant]
  39. PANTOPRAZOLE [Suspect]
     Active Substance: PANTOPRAZOLE
     Indication: GASTROOESOPHAGEAL REFLUX DISEASE
     Dosage: GENERIC
     Route: 065
     Dates: start: 20150604, end: 20151222
  40. ACETAMINOPHEN. [Concomitant]
     Active Substance: ACETAMINOPHEN
     Indication: PAIN IN EXTREMITY
     Dates: start: 2014
  41. ONDANSETRON [Concomitant]
     Active Substance: ONDANSETRON
  42. LIDOCAINE. [Concomitant]
     Active Substance: LIDOCAINE
  43. CYCLOBENZAPRINE. [Concomitant]
     Active Substance: CYCLOBENZAPRINE
  44. CEPHALEXIN. [Concomitant]
     Active Substance: CEPHALEXIN
  45. OXYBUTYNIN. [Concomitant]
     Active Substance: OXYBUTYNIN CHLORIDE
  46. LORAZEPAM. [Concomitant]
     Active Substance: LORAZEPAM
  47. ZIPRASIDONE HCL [Concomitant]
     Active Substance: ZIPRASIDONE HYDROCHLORIDE
  48. BACLOFEN. [Concomitant]
     Active Substance: BACLOFEN
  49. METAMUCIL [Concomitant]
     Active Substance: PLANTAGO SEED
  50. ERYTHROMYCIN. [Concomitant]
     Active Substance: ERYTHROMYCIN
  51. TERCONAZOLE. [Concomitant]
     Active Substance: TERCONAZOLE
  52. HYDROXYZINE HCL [Concomitant]
     Active Substance: HYDROXYZINE HYDROCHLORIDE
  53. FERROUS GLUCONATE [Concomitant]
     Active Substance: FERROUS GLUCONATE
  54. MUPIROCIN. [Concomitant]
     Active Substance: MUPIROCIN
  55. GINKGO BILOBA [Concomitant]
     Active Substance: GINKGO
  56. PRILOSEC OTC [Suspect]
     Active Substance: OMEPRAZOLE MAGNESIUM
     Indication: GASTROOESOPHAGEAL REFLUX DISEASE
     Route: 048
     Dates: start: 2015
  57. RANITIDINE. [Concomitant]
     Active Substance: RANITIDINE
     Dates: start: 20170914, end: 20180119
  58. MYRBETRIQ [Concomitant]
     Active Substance: MIRABEGRON
  59. SYMBICORT [Concomitant]
     Active Substance: BUDESONIDE\FORMOTEROL FUMARATE DIHYDRATE
  60. LAMOTRIGINE. [Concomitant]
     Active Substance: LAMOTRIGINE
  61. ZONISAMIDE. [Concomitant]
     Active Substance: ZONISAMIDE
  62. TAZTIA XT [Concomitant]
     Active Substance: DILTIAZEM HYDROCHLORIDE
  63. VESICARE [Concomitant]
     Active Substance: SOLIFENACIN SUCCINATE
  64. MELATONIN [Concomitant]
     Active Substance: MELATONIN
  65. PYRIDOXINE [Concomitant]
     Active Substance: PYRIDOXINE
  66. KEPPRA [Concomitant]
     Active Substance: LEVETIRACETAM
  67. VALPROATE [Concomitant]
     Active Substance: VALPROIC ACID
  68. FLOVENT [Concomitant]
     Active Substance: FLUTICASONE PROPIONATE
     Indication: DYSPNOEA
     Dates: start: 20140612, end: 20150628
  69. PROMETHAZINE [Concomitant]
     Active Substance: PROMETHAZINE HYDROCHLORIDE
     Indication: MOTION SICKNESS
     Dates: start: 20140805
  70. ACETAMINOPHEN. [Concomitant]
     Active Substance: ACETAMINOPHEN
     Indication: PAIN
     Dates: start: 2014
  71. TIZANIDINE. [Concomitant]
     Active Substance: TIZANIDINE
  72. PREDNISONE. [Concomitant]
     Active Substance: PREDNISONE
  73. GUAIFENESIN. [Concomitant]
     Active Substance: GUAIFENESIN
  74. MINOCYCLINE [Concomitant]
     Active Substance: MINOCYCLINE HYDROCHLORIDE
  75. PRAMIPEXOLE. [Concomitant]
     Active Substance: PRAMIPEXOLE
  76. PROCHLORPERAZINE. [Concomitant]
     Active Substance: PROCHLORPERAZINE
  77. BUTALBITAL/ACETAMINOPHEN/CAFF [Concomitant]
  78. MEMANTINE. [Concomitant]
     Active Substance: MEMANTINE
  79. PENICILLIN VK [Concomitant]
     Active Substance: PENICILLIN V POTASSIUM
  80. METHYLPREDNISOLONE ACETATE. [Concomitant]
     Active Substance: METHYLPREDNISOLONE ACETATE
  81. VITAMIN B COMPLEX [Concomitant]
     Active Substance: CYANOCOBALAMIN\DEXPANTHENOL\NIACINAMIDE\PYRIDOXINE HYDROCHLORIDE\RIBOFLAVIN 5^-PHOSPHATE SODIUM\THIAMINE HYDROCHLORIDE\VITAMIN B COMPLEX
  82. MIDRIN [Concomitant]
     Active Substance: ACETAMINOPHEN\DICHLORALPHENAZONE\ISOMETHEPTENE
  83. MAGNESIUM SULFATE. [Concomitant]
     Active Substance: MAGNESIUM SULFATE
  84. NEXIUM 24HR [Suspect]
     Active Substance: ESOMEPRAZOLE MAGNESIUM
     Route: 048
  85. MILK OF MAGNESIA [Concomitant]
     Active Substance: MAGNESIUM HYDROXIDE
     Dates: start: 2006, end: 2013
  86. FLUCONAZOLE. [Concomitant]
     Active Substance: FLUCONAZOLE
  87. BUSPIRONE [Concomitant]
     Active Substance: BUSPIRONE HYDROCHLORIDE
  88. CLINDAMYCIN. [Concomitant]
     Active Substance: CLINDAMYCIN
  89. LEVOFLOXACIN. [Concomitant]
     Active Substance: LEVOFLOXACIN
  90. KETOPROFEN. [Concomitant]
     Active Substance: KETOPROFEN
  91. VOLTAREN [Concomitant]
     Active Substance: DICLOFENAC SODIUM
  92. DIAZEPAM. [Concomitant]
     Active Substance: DIAZEPAM
  93. CLOBETASOL [Concomitant]
     Active Substance: CLOBETASOL
  94. CLONAZEPAM. [Concomitant]
     Active Substance: CLONAZEPAM
  95. VALACYCLOVIR [Concomitant]
     Active Substance: VALACYCLOVIR HYDROCHLORIDE
  96. METHYLPREDNISOLONE. [Concomitant]
     Active Substance: METHYLPREDNISOLONE
  97. ASPIRIN. [Concomitant]
     Active Substance: ASPIRIN
  98. LANSOPRAZOLE. [Suspect]
     Active Substance: LANSOPRAZOLE
     Indication: GASTROOESOPHAGEAL REFLUX DISEASE
     Dosage: GENERIC
     Route: 065
     Dates: start: 20130813, end: 20140626
  99. IBUPROFEN. [Concomitant]
     Active Substance: IBUPROFEN
     Indication: PAIN
     Dates: start: 201505, end: 201801
  100. PEPTO-BISMOL [Concomitant]
     Active Substance: BISMUTH SUBSALICYLATE
     Dates: start: 2006, end: 2013
  101. MIRALAX [Concomitant]
     Active Substance: POLYETHYLENE GLYCOL 3350
     Dates: start: 2013
  102. MAGNESIUM OXIDE. [Concomitant]
     Active Substance: MAGNESIUM OXIDE
  103. DICYCLOMINE [Concomitant]
     Active Substance: DICYCLOMINE HYDROCHLORIDE
  104. ZENPEP [Concomitant]
     Active Substance: PANCRELIPASE AMYLASE\PANCRELIPASE LIPASE\PANCRELIPASE PROTEASE
  105. CELECOXIB. [Concomitant]
     Active Substance: CELECOXIB
  106. LATUDA [Concomitant]
     Active Substance: LURASIDONE HYDROCHLORIDE
  107. TOPIRAMATE. [Concomitant]
     Active Substance: TOPIRAMATE
  108. FOLIC ACID. [Concomitant]
     Active Substance: FOLIC ACID
  109. Q-PAP [Concomitant]
     Active Substance: ACETAMINOPHEN
  110. SPIRIVA [Concomitant]
     Active Substance: TIOTROPIUM BROMIDE MONOHYDRATE
  111. ATARAX [Concomitant]
     Active Substance: HYDROXYZINE HYDROCHLORIDE
  112. LACTASE [Concomitant]
     Active Substance: LACTASE

REACTIONS (1)
  - Chronic kidney disease [Not Recovered/Not Resolved]

NARRATIVE: CASE EVENT DATE: 2015
